FAERS Safety Report 18479600 (Version 1)
Quarter: 2020Q4

REPORT INFORMATION
  Report Type: Spontaneous
  Country: JP (occurrence: JP)
  Receive Date: 20201109
  Receipt Date: 20201109
  Transmission Date: 20210114
  Serious: Yes (Hospitalization)
  Sender: FDA-Public Use
  Company Number: JP-MYLANLABS-2020M1092592

PATIENT
  Age: 12 Year
  Sex: Female

DRUGS (5)
  1. ETOPOSIDE. [Suspect]
     Active Substance: ETOPOSIDE
     Indication: OVARIAN GERM CELL TERATOMA
     Dosage: RECEIVED 1 CYCLE ALONG WITH BLEOMYCIN AND CISPLATIN CHEMOTHERAPY; AND RECEIVED ANOTHER ONE CYCLE WIT
     Route: 065
  2. IFOSFAMIDE. [Suspect]
     Active Substance: IFOSFAMIDE
     Indication: OVARIAN GERM CELL TERATOMA
     Dosage: RECEIVED 1 CYCLE
     Route: 065
  3. CARBOPLATIN. [Suspect]
     Active Substance: CARBOPLATIN
     Indication: OVARIAN GERM CELL TERATOMA
     Dosage: RECEIVED 1 CYCLE
     Route: 065
  4. CISPLATIN. [Suspect]
     Active Substance: CISPLATIN
     Indication: OVARIAN GERM CELL TERATOMA
     Dosage: RECEIVED 1 CYCLE
     Route: 065
  5. BLEOMYCIN [Suspect]
     Active Substance: BLEOMYCIN SULFATE
     Indication: OVARIAN GERM CELL TERATOMA
     Dosage: RECEIVED 1 CYCLE
     Route: 065

REACTIONS (3)
  - Neoplasm [Recovering/Resolving]
  - Ovarian germ cell teratoma [Recovering/Resolving]
  - Transdifferentiation of neoplasm [Recovering/Resolving]
